FAERS Safety Report 8393537-4 (Version None)
Quarter: 2012Q2

REPORT INFORMATION
  Report Type: 
  Country: None (occurrence: None)
  Receive Date: 20120529
  Receipt Date: 20120516
  Transmission Date: 20120825
  Serious: Yes (Other)
  Sender: FDA-Public Use
  Company Number: JP-MYLANLABS-2012S1010372

PATIENT
  Age: 56 Year
  Sex: Male

DRUGS (2)
  1. FLUOROURACIL [Suspect]
     Indication: PANCREATIC CARCINOMA
     Dosage: AS 5-H CONTINUOUS INFUSION FOR 3W OF 4-W CYCLE
     Route: 013
  2. GEMCITABINE [Concomitant]
     Indication: PANCREATIC CARCINOMA
     Dosage: 600 MG/M2 INFUSION FOR 3W OF 4-W CYCLE
     Route: 050

REACTIONS (2)
  - BILOMA [None]
  - HEPATIC ARTERY STENOSIS [None]
